FAERS Safety Report 13377878 (Version 1)
Quarter: 2017Q1

REPORT INFORMATION
  Report Type: Spontaneous
  Country: HU (occurrence: HU)
  Receive Date: 20170328
  Receipt Date: 20170328
  Transmission Date: 20170429
  Serious: Yes (Hospitalization, Other)
  Sender: FDA-Public Use
  Company Number: HU-B.I. PHARMACEUTICALS,INC./RIDGEFIELD-2017-BI-016867

PATIENT
  Age: 79 Year
  Sex: Female
  Weight: 55 kg

DRUGS (4)
  1. ACENOCOUMAROL [Concomitant]
     Active Substance: ACENOCOUMAROL
     Indication: PRODUCT USED FOR UNKNOWN INDICATION
     Route: 065
  2. DABIGATRAN [Suspect]
     Active Substance: DABIGATRAN
     Indication: ATRIAL FIBRILLATION
     Route: 065
     Dates: start: 2015
  3. AMIODARONE [Concomitant]
     Active Substance: AMIODARONE
     Indication: PRODUCT USED FOR UNKNOWN INDICATION
  4. DABIGATRAN [Suspect]
     Active Substance: DABIGATRAN
     Indication: PROPHYLAXIS
     Route: 065

REACTIONS (10)
  - Cholelithiasis [Unknown]
  - Gallbladder perforation [Unknown]
  - Renal cancer [Unknown]
  - Bile duct stone [Unknown]
  - Ileus [Unknown]
  - Haemobilia [Unknown]
  - Sepsis [Unknown]
  - Pneumonia [Recovered/Resolved]
  - Pancreatitis [Unknown]
  - Peritonitis [Unknown]

NARRATIVE: CASE EVENT DATE: 201602
